FAERS Safety Report 7398037-6 (Version None)
Quarter: 2011Q2

REPORT INFORMATION
  Report Type: 
  Country: None (occurrence: None)
  Receive Date: 20110406
  Receipt Date: 20110330
  Transmission Date: 20111010
  Serious: Yes (Other)
  Sender: FDA-Public Use
  Company Number: US-US-EMD SERONO, INC.-7049849

PATIENT
  Sex: Female
  Weight: 86 kg

DRUGS (5)
  1. TOPROL-XL [Concomitant]
  2. DILANTIN [Concomitant]
     Indication: CONVULSION
  3. REBIF [Suspect]
     Indication: MULTIPLE SCLEROSIS
     Route: 058
     Dates: start: 20110117, end: 20110313
  4. HYDROCHLOROTHIAZIDE [Concomitant]
     Indication: HYPERTENSION
     Route: 048
  5. PRILOSEC [Concomitant]
     Indication: GASTROOESOPHAGEAL REFLUX DISEASE
     Route: 048

REACTIONS (2)
  - GRAND MAL CONVULSION [None]
  - CEREBRAL CYST [None]
